FAERS Safety Report 7781010-3 (Version None)
Quarter: 2011Q3

REPORT INFORMATION
  Report Type: 
  Country: None (occurrence: None)
  Receive Date: 20110927
  Receipt Date: 20110922
  Transmission Date: 20111222
  Serious: Yes (Life-Threatening, Hospitalization)
  Sender: FDA-Public Use
  Company Number: NO-ABBOTT-11P-122-0857230-00

PATIENT
  Sex: Female

DRUGS (2)
  1. CLARITHROMYCIN [Suspect]
     Indication: PNEUMONIA
     Route: 048
     Dates: start: 20110906, end: 20110909
  2. PENICILLIN [Concomitant]
     Indication: PNEUMONIA

REACTIONS (7)
  - VENTRICULAR FIBRILLATION [None]
  - LUNG INFILTRATION [None]
  - ATRIOVENTRICULAR BLOCK [None]
  - TORSADE DE POINTES [None]
  - PERIPARTUM CARDIOMYOPATHY [None]
  - VENTRICULAR TACHYCARDIA [None]
  - ELECTROCARDIOGRAM QT PROLONGED [None]
